FAERS Safety Report 16865535 (Version 1)
Quarter: 2019Q3

REPORT INFORMATION
  Report Type: Spontaneous
  Country: US (occurrence: US)
  Receive Date: 20190930
  Receipt Date: 20190930
  Transmission Date: 20191005
  Serious: Yes (Other)
  Sender: FDA-Public Use
  Company Number: US-CIPLA LTD.-2019US06402

PATIENT

DRUGS (2)
  1. SYNTHROID [Concomitant]
     Active Substance: LEVOTHYROXINE SODIUM
     Indication: THYROID DISORDER
     Dosage: 25 MILLIGRAM, QD (ONCE A DAY), FROM PAST TWO YEARS
     Route: 065
     Dates: start: 2017
  2. BUPROPION HYDROCHLORIDE XL [Suspect]
     Active Substance: BUPROPION HYDROCHLORIDE
     Indication: DEPRESSION
     Dosage: 300 MILLIGRAM, UNK
     Route: 048
     Dates: start: 2019

REACTIONS (10)
  - Alopecia [Not Recovered/Not Resolved]
  - Suspected counterfeit product [Not Recovered/Not Resolved]
  - Weight increased [Not Recovered/Not Resolved]
  - Social avoidant behaviour [Not Recovered/Not Resolved]
  - Product substitution issue [Unknown]
  - Anxiety [Not Recovered/Not Resolved]
  - Eating disorder [Not Recovered/Not Resolved]
  - Lymphadenopathy [Not Recovered/Not Resolved]
  - Suicidal ideation [Not Recovered/Not Resolved]
  - Nervousness [Not Recovered/Not Resolved]
